FAERS Safety Report 11298439 (Version 1)
Quarter: 2015Q3

REPORT INFORMATION
  Report Type: Spontaneous
  Country: US (occurrence: US)
  Receive Date: 20150722
  Receipt Date: 20150722
  Transmission Date: 20151125
  Serious: Yes (Hospitalization, Other)
  Sender: FDA-Public Use
  Company Number: US-ELI_LILLY_AND_COMPANY-US201107007059

PATIENT
  Age: 73 Year
  Sex: Female
  Weight: 65.31 kg

DRUGS (1)
  1. EVISTA [Suspect]
     Active Substance: RALOXIFENE HYDROCHLORIDE
     Dosage: 60 MG, UNK
     Route: 048
     Dates: end: 20110718

REACTIONS (3)
  - Overweight [Unknown]
  - Prothrombin time prolonged [Unknown]
  - Thrombosis [Unknown]

NARRATIVE: CASE EVENT DATE: 20100412
